FAERS Safety Report 23047071 (Version 2)
Quarter: 2023Q4

REPORT INFORMATION
  Report Type: Spontaneous
  Country: US (occurrence: US)
  Receive Date: 20231009
  Receipt Date: 20231108
  Transmission Date: 20240109
  Serious: No
  Sender: FDA-Public Use
  Company Number: US-BIOMARINAP-US-2023-153054

PATIENT

DRUGS (1)
  1. PALYNZIQ [Suspect]
     Active Substance: PEGVALIASE-PQPZ
     Indication: Product used for unknown indication
     Dosage: UNK, QW
     Route: 058

REACTIONS (7)
  - Bone pain [Unknown]
  - Gait inability [Unknown]
  - Skin discolouration [Not Recovered/Not Resolved]
  - Scar [Not Recovered/Not Resolved]
  - Skin mass [Not Recovered/Not Resolved]
  - Arthralgia [Unknown]
  - Needle issue [Unknown]
